FAERS Safety Report 10771575 (Version 1)
Quarter: 2015Q1

REPORT INFORMATION
  Report Type: Spontaneous
  Country: US (occurrence: US)
  Receive Date: 20150206
  Receipt Date: 20150206
  Transmission Date: 20150721
  Serious: No
  Sender: FDA-Public Use
  Company Number: US-ASTRAZENECA-2014SE07068

PATIENT
  Age: 70 Year
  Sex: Female

DRUGS (3)
  1. LISINOPRIL. [Suspect]
     Active Substance: LISINOPRIL
     Route: 048
  2. ATENOLOL. [Suspect]
     Active Substance: ATENOLOL
     Route: 065
  3. VALSARTAN. [Concomitant]
     Active Substance: VALSARTAN

REACTIONS (2)
  - Joint swelling [Unknown]
  - Cough [Unknown]
